FAERS Safety Report 11131576 (Version 1)
Quarter: 2015Q2

REPORT INFORMATION
  Report Type: Spontaneous
  Country: US (occurrence: None)
  Receive Date: 20150521
  Receipt Date: 20150521
  Transmission Date: 20150821
  Serious: No
  Sender: FDA-Public Use
  Company Number: None

PATIENT
  Age: 31 Year
  Sex: Female

DRUGS (8)
  1. LETROZOLE. [Concomitant]
     Active Substance: LETROZOLE
  2. ATIVAN [Concomitant]
     Active Substance: LORAZEPAM
  3. VITAMIN B12 [Concomitant]
     Active Substance: CYANOCOBALAMIN
  4. MORPHINE [Concomitant]
     Active Substance: MORPHINE
  5. CALCIUM [Concomitant]
     Active Substance: CALCIUM
  6. LATUNA [Concomitant]
  7. IBRANCE [Suspect]
     Active Substance: PALBOCICLIB
     Indication: BREAST CANCER
     Dosage: DAILY X 3 WEEKS ON, 1 WEEK OFF
     Route: 048
     Dates: start: 20150428
  8. LAMICTAL [Concomitant]
     Active Substance: LAMOTRIGINE

REACTIONS (1)
  - Fatigue [None]

NARRATIVE: CASE EVENT DATE: 20150428
